FAERS Safety Report 22986835 (Version 2)
Quarter: 2023Q4

REPORT INFORMATION
  Report Type: Spontaneous
  Country: US (occurrence: US)
  Receive Date: 20230926
  Receipt Date: 20231026
  Transmission Date: 20240109
  Serious: No
  Sender: FDA-Public Use
  Company Number: US-PFIZER INC-PV202300159916

PATIENT
  Age: 49 Year
  Sex: Female
  Weight: 58.5 kg

DRUGS (2)
  1. TRAZIMERA [Suspect]
     Active Substance: TRASTUZUMAB-QYYP
     Indication: Neutropenia
     Dosage: 462 MG (EVERY 21 DAYS)
     Route: 042
     Dates: start: 20230905
  2. TRAZIMERA [Suspect]
     Active Substance: TRASTUZUMAB-QYYP
     Indication: Invasive ductal breast carcinoma

REACTIONS (2)
  - Neutrophil count increased [Unknown]
  - Haemoglobin decreased [Unknown]

NARRATIVE: CASE EVENT DATE: 20230905
